FAERS Safety Report 8762201 (Version 1)
Quarter: 2012Q4

REPORT INFORMATION
  Report Type: 
  Country: BR (occurrence: BR)
  Receive Date: 20120829
  Receipt Date: 20120829
  Transmission Date: 20130627
  Serious: Yes (Other)
  Sender: FDA-Public Use
  Company Number: BR-PFIZER INC-2012209856

PATIENT
  Age: 26 Year
  Sex: Male
  Weight: 106 kg

DRUGS (3)
  1. CELEBRA [Suspect]
     Indication: INFLAMMATION
     Dosage: 200 mg (one capsule), 2x/day
     Route: 048
  2. MAXSULID [Concomitant]
     Indication: INFLAMMATION
     Dosage: two tablets daily
  3. PROFENID [Concomitant]
     Indication: INFLAMMATION
     Dosage: UNK

REACTIONS (2)
  - Fracture [Unknown]
  - Joint injury [Unknown]
